FAERS Safety Report 12376278 (Version 1)
Quarter: 2016Q2

REPORT INFORMATION
  Report Type: Spontaneous
  Country: FR (occurrence: FR)
  Receive Date: 20160517
  Receipt Date: 20160517
  Transmission Date: 20160815
  Serious: Yes (Hospitalization)
  Sender: FDA-Public Use
  Company Number: FR-SA-2016SA094582

PATIENT
  Age: 71 Year
  Sex: Male
  Weight: 89 kg

DRUGS (11)
  1. IPRATROPIUM BROMIDE\FENOTEROL HYDROBROMIDE [Concomitant]
     Active Substance: FENOTEROL HYDROBROMIDE\IPRATROPIUM BROMIDE
  2. KENZEN [Suspect]
     Active Substance: CANDESARTAN
     Indication: HYPERTENSION
     Dosage: STRENGTH: 16MG
     Route: 065
     Dates: end: 201602
  3. LOVENOX [Concomitant]
     Active Substance: ENOXAPARIN SODIUM
  4. LASILIX [Suspect]
     Active Substance: FUROSEMIDE
     Indication: HYPERTENSION
     Dosage: STRENGTH: 40G
     Route: 065
  5. AMLOR [Concomitant]
     Active Substance: AMLODIPINE BESYLATE
     Dosage: STRENGTH: 5MG
  6. LANTUS [Concomitant]
     Active Substance: INSULIN GLARGINE
  7. TARCEVA [Suspect]
     Active Substance: ERLOTINIB HYDROCHLORIDE
     Indication: LUNG NEOPLASM
     Dosage: STRENGTH: 100 MG
     Route: 065
     Dates: start: 201601, end: 20160219
  8. LEVOTHYROX [Concomitant]
     Active Substance: LEVOTHYROXINE
     Indication: HYPOTHYROIDISM
     Dosage: SCORED TABLET; STRENGTH: 150 MCG
  9. HUMALOG [Concomitant]
     Active Substance: INSULIN LISPRO
  10. CARDENSIEL [Concomitant]
     Active Substance: BISOPROLOL FUMARATE
     Indication: HYPERTENSION
     Dosage: STRENGTH: 10 MG
  11. ADENURIC [Concomitant]
     Active Substance: FEBUXOSTAT
     Dosage: STRENGTH: 80MG

REACTIONS (5)
  - Vomiting [Recovered/Resolved]
  - Abdominal sepsis [Recovered/Resolved]
  - Seborrhoeic dermatitis [Unknown]
  - Diarrhoea [Recovered/Resolved]
  - Acute prerenal failure [Recovered/Resolved]

NARRATIVE: CASE EVENT DATE: 201601
